FAERS Safety Report 23118532 (Version 1)
Quarter: 2023Q4

REPORT INFORMATION
  Report Type: Spontaneous
  Country: AR (occurrence: AR)
  Receive Date: 20231028
  Receipt Date: 20231028
  Transmission Date: 20240109
  Serious: Yes (Other)
  Sender: FDA-Public Use
  Company Number: AR-002147023-NVSC2022AR277298

PATIENT
  Age: 6 Year
  Sex: Female

DRUGS (3)
  1. OMNITROPE [Suspect]
     Active Substance: SOMATROPIN
     Dosage: 0.01 MG, QD
     Route: 058
     Dates: start: 202208
  2. OMNITROPE [Suspect]
     Active Substance: SOMATROPIN
     Indication: Small for dates baby
     Dosage: 0.1 MG, QD
     Route: 058
     Dates: start: 20220810
  3. OMNITROPE [Suspect]
     Active Substance: SOMATROPIN
     Dosage: 0.22 MG
     Route: 058

REACTIONS (3)
  - Growth retardation [Unknown]
  - Urinary tract infection [Recovering/Resolving]
  - Proteinuria [Unknown]

NARRATIVE: CASE EVENT DATE: 20221123
